FAERS Safety Report 11162364 (Version 2)
Quarter: 2015Q2

REPORT INFORMATION
  Report Type: Report from Study
  Country: US (occurrence: None)
  Receive Date: 20150602
  Receipt Date: 20150611
  Transmission Date: 20150821
  Serious: Yes (Hospitalization)
  Sender: FDA-Public Use
  Company Number: AMAG201500476

PATIENT
  Age: 62 Year
  Sex: Male
  Weight: 109 kg

DRUGS (4)
  1. DECADRON (DEXAMETHASONE ACETATE) [Concomitant]
  2. LOPID [Concomitant]
     Active Substance: GEMFIBROZIL
  3. FERUMOXYTOL (ELEMENTAL IRON) INJECTION [Suspect]
     Active Substance: FERUMOXYTOL
     Indication: IRON DEFICIENCY ANAEMIA
     Route: 042
     Dates: start: 20150513, end: 20150513
  4. TEMODAR [Concomitant]
     Active Substance: TEMOZOLOMIDE

REACTIONS (1)
  - Seizure [None]

NARRATIVE: CASE EVENT DATE: 20150515
